FAERS Safety Report 21947580 (Version 1)
Quarter: 2023Q1

REPORT INFORMATION
  Report Type: Spontaneous
  Country: IT (occurrence: IT)
  Receive Date: 20230202
  Receipt Date: 20230202
  Transmission Date: 20230418
  Serious: Yes (Other)
  Sender: FDA-Public Use
  Company Number: IT-SUN PHARMACEUTICAL INDUSTRIES LTD-2020R1-250781

PATIENT
  Age: 81 Year
  Sex: Female

DRUGS (1)
  1. LITHIUM [Suspect]
     Active Substance: LITHIUM
     Indication: Bipolar disorder
     Dosage: 450 MILLIGRAM, DAILY
     Route: 065

REACTIONS (3)
  - Hypertrophic cardiomyopathy [Unknown]
  - Nephrogenic diabetes insipidus [Unknown]
  - Drug level increased [Unknown]
